FAERS Safety Report 10953955 (Version 1)
Quarter: 2015Q1

REPORT INFORMATION
  Report Type: Spontaneous
  Country: US (occurrence: None)
  Receive Date: 20150226
  Receipt Date: 20150226
  Transmission Date: 20150721
  Serious: Yes (Disabling)
  Sender: FDA-Public Use
  Company Number: TAP2004Q01039

PATIENT
  Age: 31 Year
  Sex: Male

DRUGS (1)
  1. PREVACID [Suspect]
     Active Substance: LANSOPRAZOLE
     Indication: GASTROOESOPHAGEAL REFLUX DISEASE
     Route: 048
     Dates: start: 2001, end: 2001

REACTIONS (13)
  - Hypoaesthesia [None]
  - Asthenia [None]
  - Hyperchlorhydria [None]
  - Chills [None]
  - Flatulence [None]
  - Abdominal distension [None]
  - Diarrhoea [None]
  - Neck pain [None]
  - Paraesthesia [None]
  - Syncope [None]
  - Musculoskeletal pain [None]
  - Abdominal pain [None]
  - Constipation [None]

NARRATIVE: CASE EVENT DATE: 2001
